FAERS Safety Report 8591306 (Version 11)
Quarter: 2016Q3

REPORT INFORMATION
  Report Type: Report from Study
  Country: MX (occurrence: MX)
  Receive Date: 20120601
  Receipt Date: 20160901
  Transmission Date: 20161109
  Serious: Yes (Hospitalization, Other)
  Sender: FDA-Public Use
  Company Number: PHHY2012MX046300

PATIENT
  Age: 82 Year
  Sex: Female
  Weight: 61 kg

DRUGS (16)
  1. VALSARTAN. [Suspect]
     Active Substance: VALSARTAN
     Indication: PRODUCT USED FOR UNKNOWN INDICATION
     Dosage: 2 DF, UNK
     Route: 065
     Dates: start: 201607
  2. SOTOPER [Concomitant]
     Indication: PRODUCT USED FOR UNKNOWN INDICATION
     Dosage: 160 MG, QD
     Route: 065
  3. ANAPSIQUE [Concomitant]
     Indication: PRODUCT USED FOR UNKNOWN INDICATION
     Route: 065
  4. CRESTOR [Concomitant]
     Active Substance: ROSUVASTATIN CALCIUM
     Indication: BLOOD TRIGLYCERIDES ABNORMAL
  5. DIOVAN [Suspect]
     Active Substance: VALSARTAN
     Dosage: 320 MG BID (IN THE MORNINGS AND IN THE EVENINGS) DAILY
     Route: 048
     Dates: start: 201310, end: 201607
  6. VITAMIN C [Concomitant]
     Active Substance: ASCORBIC ACID
     Indication: PRODUCT USED FOR UNKNOWN INDICATION
     Dosage: 160 MG, QD
     Route: 065
  7. CRESTOR [Concomitant]
     Active Substance: ROSUVASTATIN CALCIUM
     Indication: BLOOD CHOLESTEROL ABNORMAL
     Route: 065
  8. TENORETIC [Concomitant]
     Active Substance: ATENOLOL\CHLORTHALIDONE
     Indication: HYPERTENSION
     Dosage: UNK UNK, QD
     Route: 065
  9. MODURETIC 5-50 [Concomitant]
     Active Substance: AMILORIDE HYDROCHLORIDE\HYDROCHLOROTHIAZIDE
     Indication: DIURETIC THERAPY
     Dosage: 50 MG, QD
     Route: 065
  10. CLOPIDOGREL [Concomitant]
     Active Substance: CLOPIDOGREL BISULFATE
     Indication: PRODUCT USED FOR UNKNOWN INDICATION
     Route: 065
  11. SOTOPER [Concomitant]
     Dosage: 2 DF, QD
     Route: 065
  12. OMEPRAZOLE. [Concomitant]
     Active Substance: OMEPRAZOLE
     Indication: PRODUCT USED FOR UNKNOWN INDICATION
     Dosage: 20 MG, IN THE MORNING
     Route: 065
  13. URO-VAXOM [Concomitant]
     Indication: CYSTITIS
     Route: 065
  14. URO-VAXOM [Concomitant]
     Indication: ESCHERICHIA INFECTION
     Dosage: 1 DF, FOR 4 MONTHS
     Route: 065
  15. DIOVAN [Suspect]
     Active Substance: VALSARTAN
     Indication: HYPERTENSION
     Dosage: 480 MG, 320MG, (ONE TABLET IN THE MORNING) AND 160MG (ONE TABLET IN THE EVENING)
     Route: 048
     Dates: end: 201310
  16. PLAVIX [Concomitant]
     Active Substance: CLOPIDOGREL BISULFATE
     Indication: PRODUCT USED FOR UNKNOWN INDICATION
     Dosage: 0.5 DF, QD
     Route: 065

REACTIONS (33)
  - Thyroid adenoma [Unknown]
  - Blood sodium decreased [Recovered/Resolved]
  - Rash pruritic [Not Recovered/Not Resolved]
  - Blood pressure fluctuation [Not Recovered/Not Resolved]
  - Drug intolerance [Not Recovered/Not Resolved]
  - Intentional overdose [Recovered/Resolved]
  - Haemoglobin decreased [Not Recovered/Not Resolved]
  - Head discomfort [Not Recovered/Not Resolved]
  - Urticaria [Not Recovered/Not Resolved]
  - Abdominal discomfort [Unknown]
  - Disease susceptibility [Not Recovered/Not Resolved]
  - Fall [Not Recovered/Not Resolved]
  - Cystitis escherichia [Not Recovered/Not Resolved]
  - Abdominal pain lower [Unknown]
  - Swelling face [Not Recovered/Not Resolved]
  - Lower limb fracture [Not Recovered/Not Resolved]
  - Skin exfoliation [Not Recovered/Not Resolved]
  - Feeling abnormal [Unknown]
  - Tachycardia [Not Recovered/Not Resolved]
  - Hypoacusis [Not Recovered/Not Resolved]
  - Dysphonia [Not Recovered/Not Resolved]
  - Sleep disorder [Not Recovered/Not Resolved]
  - Anxiety [Not Recovered/Not Resolved]
  - Limb injury [Not Recovered/Not Resolved]
  - Ligament rupture [Not Recovered/Not Resolved]
  - Localised oedema [Not Recovered/Not Resolved]
  - Benign breast neoplasm [Not Recovered/Not Resolved]
  - Arrhythmia [Not Recovered/Not Resolved]
  - Ligament sprain [Not Recovered/Not Resolved]
  - Blood pressure increased [Not Recovered/Not Resolved]
  - Burning sensation [Unknown]
  - Urine analysis abnormal [Unknown]
  - Tinnitus [Not Recovered/Not Resolved]

NARRATIVE: CASE EVENT DATE: 2009
